FAERS Safety Report 7545318-9 (Version None)
Quarter: 2011Q2

REPORT INFORMATION
  Report Type: 
  Country: None (occurrence: None)
  Receive Date: 20110613
  Receipt Date: 20110613
  Transmission Date: 20111010
  Serious: No
  Sender: FDA-Public Use
  Company Number: None

PATIENT
  Age: 13 Month
  Sex: Female
  Weight: 9.2987 kg

DRUGS (2)
  1. HYLAND TEETHING TABLETS NDC 54973-7501-1 [Suspect]
     Indication: TEETHING
     Dosage: 2-3 PILLS EVERY 2 HOURS PO
     Route: 048
     Dates: start: 20101001, end: 20110408
  2. HYLAND TEETHING TABLETS NDC 54973-7501-1 [Suspect]

REACTIONS (6)
  - WHEEZING [None]
  - ERYTHEMA [None]
  - DRUG HYPERSENSITIVITY [None]
  - SOMNOLENCE [None]
  - COUGH [None]
  - PRODUCT QUALITY ISSUE [None]
